FAERS Safety Report 6892652-1 (Version None)
Quarter: 2010Q3

REPORT INFORMATION
  Report Type: 
  Country: None (occurrence: None)
  Receive Date: 20100731
  Receipt Date: 20080805
  Transmission Date: 20110219
  Serious: No
  Sender: FDA-Public Use
  Company Number: US-PFIZER INC-2008027900

PATIENT
  Sex: Male
  Weight: 73.03 kg

DRUGS (4)
  1. AMLODIPINE [Suspect]
     Indication: RAYNAUD'S PHENOMENON
     Dosage: 2.5 MG,ONCE DAILY
     Dates: start: 20080313
  2. BACTROBAN [Concomitant]
     Dosage: 1.25 MG (HALF DOSE),AS NEEDED
     Dates: start: 20080313
  3. FLAXSEED OIL [Concomitant]
  4. VITAMIN D [Concomitant]

REACTIONS (2)
  - DIZZINESS [None]
  - ORTHOSTATIC HYPOTENSION [None]
